FAERS Safety Report 11988550 (Version 7)
Quarter: 2016Q4

REPORT INFORMATION
  Report Type: Report from Study
  Country: IN (occurrence: IN)
  Receive Date: 20160202
  Receipt Date: 20161123
  Transmission Date: 20170206
  Serious: Yes (Hospitalization)
  Sender: FDA-Public Use
  Company Number: IN-NOVOPROD-477755

PATIENT
  Age: 53 Year
  Sex: Male
  Weight: 84.4 kg

DRUGS (64)
  1. NOVORAPID [Suspect]
     Active Substance: INSULIN ASPART
     Indication: TYPE 2 DIABETES MELLITUS
     Dosage: 100 U, QD
     Route: 058
     Dates: start: 20140419, end: 20160120
  2. ULTRACET [Concomitant]
     Active Substance: ACETAMINOPHEN\TRAMADOL HYDROCHLORIDE
     Dosage: UNK
     Dates: start: 20160115, end: 20160118
  3. ULTRACET [Concomitant]
     Active Substance: ACETAMINOPHEN\TRAMADOL HYDROCHLORIDE
     Dosage: UNK
     Dates: start: 20160128, end: 20160202
  4. VITAMIN B COMPLEX [Concomitant]
     Active Substance: CYANOCOBALAMIN\DEXPANTHENOL\NIACINAMIDE\PYRIDOXINE HYDROCHLORIDE\RIBOFLAVIN 5^-PHOSPHATE SODIUM\THIAMINE HYDROCHLORIDE\VITAMIN B COMPLEX
     Dosage: UNK
     Dates: start: 20160115, end: 20160120
  5. ONDASETRON                         /00955301/ [Concomitant]
     Active Substance: ONDANSETRON
     Dosage: INJECTION
     Dates: start: 20160121, end: 20160129
  6. DYTOR [Concomitant]
     Active Substance: TORSEMIDE
     Dosage: TABLET
     Dates: start: 20160205, end: 20160223
  7. OTRIVIN [Concomitant]
     Active Substance: XYLOMETAZOLINE
     Dosage: UNK
     Dates: start: 20160124, end: 20160127
  8. PANTOPRAZOLE SODIUM. [Concomitant]
     Active Substance: PANTOPRAZOLE SODIUM
     Dosage: UNK
     Dates: start: 20160128, end: 20160319
  9. CHYMORAL                           /00087801/ [Concomitant]
     Dosage: UNK
     Dates: start: 20160219, end: 20160219
  10. ENEMA                              /00200601/ [Concomitant]
     Dosage: UNK
     Dates: start: 20160130, end: 20160130
  11. CIPLOX                             /00697201/ [Concomitant]
     Dosage: EYE DROPS
     Dates: start: 20160212, end: 20160224
  12. PERINORM [Concomitant]
     Dosage: UNK
     Dates: start: 20160120, end: 20160127
  13. ACETAMINOPHEN. [Concomitant]
     Active Substance: ACETAMINOPHEN
     Dosage: UNK
     Dates: start: 20160121, end: 20160217
  14. ONDASETRON                         /00955301/ [Concomitant]
     Active Substance: ONDANSETRON
     Dosage: INJECTION
     Dates: start: 20160216, end: 20160217
  15. DYTOR [Concomitant]
     Active Substance: TORSEMIDE
     Dosage: INJECTION
     Dates: start: 20160121, end: 20160121
  16. DEXTROSE WATER [Concomitant]
     Dosage: INJECTION
     Dates: start: 20160124, end: 20160310
  17. PARAFFIN [Concomitant]
     Active Substance: PARAFFIN
     Dosage: NASAL DROPS
     Dates: start: 20160124, end: 20160127
  18. EFCORLIN                           /00028602/ [Concomitant]
     Dosage: INJECTION
     Dates: start: 20160126
  19. DIGENE                             /01361001/ [Concomitant]
     Dosage: UNK
     Dates: start: 20160204, end: 20160206
  20. NEOMOL [Concomitant]
     Dosage: INJECTION
     Dates: start: 20160216, end: 20160216
  21. ONDASETRON                         /00955301/ [Concomitant]
     Active Substance: ONDANSETRON
     Dosage: TBL
     Dates: start: 20160224, end: 20160228
  22. SODIUM BICARBONATE. [Concomitant]
     Active Substance: SODIUM BICARBONATE
     Dosage: INJECTION
     Dates: start: 20160121, end: 20160121
  23. FEBRINIL [Concomitant]
     Dosage: INJECTION
     Dates: start: 20160124, end: 20160124
  24. MAGNESIUM SULPHATE                 /01097001/ [Concomitant]
     Active Substance: MAGNESIUM SULFATE
     Dosage: INJECTION
     Dates: start: 20160129, end: 20160129
  25. POTRATE MB6 [Concomitant]
     Dosage: UNK
     Dates: start: 20160217, end: 20160223
  26. DOXYCYCLINE HYDROCHLORIDE [Concomitant]
     Active Substance: DOXYCYCLINE HYDROCHLORIDE
     Dosage: UNK
     Dates: start: 20160218, end: 20160219
  27. IDEG 100U VIAL [Suspect]
     Active Substance: INSULIN DEGLUDEC
     Indication: TYPE 2 DIABETES MELLITUS
     Dosage: 70 U, QD
     Route: 058
     Dates: start: 20140419, end: 20160120
  28. XYLOMIST [Concomitant]
     Dosage: UNK
     Dates: start: 20160115, end: 20160118
  29. DYTOR [Concomitant]
     Active Substance: TORSEMIDE
     Dosage: INJECTION
     Dates: start: 20160217, end: 20160217
  30. ALLEGRA [Concomitant]
     Active Substance: FEXOFENADINE HYDROCHLORIDE
     Dosage: UNK
     Dates: start: 20160123, end: 20160127
  31. FEBRINIL [Concomitant]
     Dosage: INJECTION
     Dates: start: 20160212, end: 20160212
  32. PERFALGAN [Concomitant]
     Active Substance: ACETAMINOPHEN
     Dosage: INJECTION
     Dates: start: 20160216, end: 20160217
  33. AUGMENTIN [Concomitant]
     Active Substance: AMOXICILLIN\CLAVULANATE POTASSIUM
     Dosage: INJECTION
     Dates: start: 20160130, end: 20160208
  34. CEFOPERAZONE W/SULBACTAM [Concomitant]
     Active Substance: CEFOPERAZONE\SULBACTAM
     Dosage: INJECTION
     Dates: start: 20160211, end: 20160212
  35. COLISTIMETHATE [Concomitant]
     Active Substance: COLISTIMETHATE SODIUM
     Dosage: INJECTION
     Dates: start: 20160217, end: 20160218
  36. DIGENE                             /01361001/ [Concomitant]
     Dosage: UNK
     Dates: start: 20160204, end: 20160206
  37. L DIO 1 M [Concomitant]
     Dosage: UNK
     Dates: start: 20160115, end: 20160118
  38. OPTINEURON                         /00322001/ [Concomitant]
     Dosage: INJECTION
     Dates: start: 20160120, end: 20160127
  39. MAGNOVA                            /01263802/ [Concomitant]
     Dosage: UNK
     Dates: start: 20160120, end: 20160127
  40. NEXPRO                             /01479302/ [Concomitant]
     Dosage: UNK
     Dates: start: 20160120, end: 20160127
  41. AUGEOZ [Concomitant]
     Dosage: INJECTION
     Dates: start: 20160122, end: 20160127
  42. MAGNESIUM SULPHATE                 /01097001/ [Concomitant]
     Active Substance: MAGNESIUM SULFATE
     Dosage: INJECTION
     Dates: start: 20160204, end: 20160204
  43. DOXYCYCLINE. [Concomitant]
     Active Substance: DOXYCYCLINE
     Dosage: UNK
     Dates: start: 20160219, end: 20160219
  44. FOLIMAX [Concomitant]
     Dosage: UNK
     Dates: start: 20160224, end: 20160303
  45. TONOFOLIC Z [Concomitant]
     Dosage: UNK
     Dates: start: 20160224, end: 20160304
  46. CONTRAMAL [Concomitant]
     Active Substance: TRAMADOL HYDROCHLORIDE
     Dosage: INJECTION
     Dates: start: 20160120, end: 20160127
  47. LASIX [Concomitant]
     Active Substance: FUROSEMIDE
     Dosage: INJECTION
     Dates: start: 20160121, end: 20160122
  48. DUOLIN                             /01033501/ [Concomitant]
     Dosage: NEBULIZATION
     Dates: start: 20160121, end: 20160125
  49. OTRINOZ [Concomitant]
     Dosage: UNK
     Dates: start: 20160123, end: 20160123
  50. PERFALGAN [Concomitant]
     Active Substance: ACETAMINOPHEN
     Dosage: INJECTION
     Dates: start: 20160128, end: 20160128
  51. ALERFIX TOTAL [Concomitant]
     Dosage: UNK
     Dates: start: 20160129, end: 20160319
  52. DOMPERIDONE [Concomitant]
     Active Substance: DOMPERIDONE
     Dosage: UNK
     Dates: start: 20160224, end: 20160228
  53. DIGENE                             /01361001/ [Concomitant]
     Dosage: UNK
     Dates: start: 20160207, end: 20160209
  54. NORMAL SALINE [Concomitant]
     Active Substance: SODIUM CHLORIDE
     Dosage: INJECTION
     Dates: start: 20160120, end: 20160310
  55. DYTOR [Concomitant]
     Active Substance: TORSEMIDE
     Dosage: INJECTION
     Dates: start: 20160204, end: 20160204
  56. LANTUS [Concomitant]
     Active Substance: INSULIN GLARGINE
     Dosage: UNK
     Dates: start: 20160125
  57. CHYMORAL                           /00087801/ [Concomitant]
     Dosage: UNK
     Dates: start: 20160130, end: 20160202
  58. LACTULOSE. [Concomitant]
     Active Substance: LACTULOSE
     Dosage: UNK
     Dates: start: 20160219, end: 20160223
  59. DOMPERIDONE [Concomitant]
     Active Substance: DOMPERIDONE
     Dosage: UNK
     Dates: start: 20160214, end: 20160223
  60. LACTULOSE. [Concomitant]
     Active Substance: LACTULOSE
     Dosage: UNK
     Dates: start: 20160130, end: 20160209
  61. DIGENE                             /01361001/ [Concomitant]
     Dosage: UNK
     Dates: start: 20160207, end: 20160209
  62. CODEINE [Concomitant]
     Active Substance: CODEINE
     Dosage: UNK
     Dates: start: 20160215, end: 20160215
  63. POTRATE MB6 [Concomitant]
     Dosage: UNK
     Dates: start: 20160216, end: 20160216
  64. LINEZOLID POLPHARMA [Concomitant]
     Dosage: UNK
     Dates: start: 20160115, end: 20160118

REACTIONS (3)
  - Diabetes mellitus inadequate control [Recovered/Resolved]
  - Mucormycosis [Recovered/Resolved]
  - Hyperkalaemia [Recovered/Resolved]

NARRATIVE: CASE EVENT DATE: 20160108
